FAERS Safety Report 7658745-6 (Version None)
Quarter: 2011Q3

REPORT INFORMATION
  Report Type: 
  Country: None (occurrence: None)
  Receive Date: 20110805
  Receipt Date: 20110726
  Transmission Date: 20111222
  Serious: Yes (Other)
  Sender: FDA-Public Use
  Company Number: US-NOVOPROD-328686

PATIENT
  Age: 58 Year
  Sex: Female
  Weight: 85.669 kg

DRUGS (7)
  1. VICTOZA [Suspect]
     Indication: WEIGHT DECREASED
  2. PRAVACHOL [Concomitant]
     Indication: PRODUCT USED FOR UNKNOWN INDICATION
     Dosage: 40 MG, QD
  3. FISH OIL [Concomitant]
     Indication: PRODUCT USED FOR UNKNOWN INDICATION
     Dosage: 1000 MG, QD
  4. VICTOZA [Suspect]
     Indication: TYPE 2 DIABETES MELLITUS
     Dosage: 1.2 MG, QD
     Route: 058
     Dates: start: 20101014, end: 20110414
  5. GLUMETZA [Concomitant]
     Indication: PRODUCT USED FOR UNKNOWN INDICATION
     Dosage: 2000 MG, QD, EXTENDED RELEASE
  6. LEVEMIR [Concomitant]
     Indication: TYPE 2 DIABETES MELLITUS
     Dosage: 48 U, QD
  7. PAXIL [Concomitant]
     Indication: PRODUCT USED FOR UNKNOWN INDICATION
     Dosage: 20 MG, QD IN THE A.M.

REACTIONS (2)
  - WEIGHT INCREASED [None]
  - PANCREATITIS ACUTE [None]
